FAERS Safety Report 10359234 (Version 1)
Quarter: 2014Q3

REPORT INFORMATION
  Report Type: Spontaneous
  Country: US (occurrence: None)
  Receive Date: 20140731
  Receipt Date: 20140731
  Transmission Date: 20150326
  Serious: Yes (Disabling)
  Sender: FDA-Public Use
  Company Number: None

PATIENT
  Age: 43 Year
  Sex: Male
  Weight: 107.96 kg

DRUGS (1)
  1. COPAXONE [Suspect]
     Active Substance: GLATIRAMER ACETATE
     Indication: MULTIPLE SCLEROSIS
     Dosage: 1, ONCE DAILY, GIVEN INTO/UNDER THE SKIN
     Dates: start: 20130910, end: 20131119

REACTIONS (15)
  - Dizziness [None]
  - Asthenia [None]
  - Vision blurred [None]
  - Anxiety [None]
  - Musculoskeletal stiffness [None]
  - Frustration [None]
  - Injection site swelling [None]
  - Mental impairment [None]
  - Injection site pain [None]
  - Muscular weakness [None]
  - Dysgeusia [None]
  - Migraine [None]
  - Anger [None]
  - Disturbance in attention [None]
  - Sensory disturbance [None]

NARRATIVE: CASE EVENT DATE: 20131119
